FAERS Safety Report 23783359 (Version 5)
Quarter: 2024Q3

REPORT INFORMATION
  Report Type: Spontaneous
  Country: JP (occurrence: JP)
  Receive Date: 20240425
  Receipt Date: 20240906
  Transmission Date: 20241017
  Serious: Yes (Other)
  Sender: AMGEN
  Company Number: JP-AMGEN-JPNSP2024073787

PATIENT
  Sex: Female

DRUGS (6)
  1. BLINCYTO [Suspect]
     Active Substance: BLINATUMOMAB
     Indication: Philadelphia chromosome positive
     Dosage: 9 MICROGRAM, QD, INTRAVENOUS DRIP INFUSION, 24-HOUR CONTINUOUS
     Route: 042
     Dates: start: 20240311, end: 2024
  2. BLINCYTO [Suspect]
     Active Substance: BLINATUMOMAB
     Indication: B precursor type acute leukaemia
     Dosage: 28 MICROGRAM, QD, INTRAVENOUS DRIP INFUSION, 24-HOUR CONTINUOUS
     Route: 042
     Dates: start: 2024, end: 20240407
  3. BLINCYTO [Suspect]
     Active Substance: BLINATUMOMAB
     Dosage: UNK, DRIP INFUSION, 24-HR CONTINUOUS
     Route: 042
     Dates: start: 20240531, end: 2024
  4. BLINCYTO [Suspect]
     Active Substance: BLINATUMOMAB
     Dosage: UNK, IV DRIP INFUSION, 24 HOUR CONTINOUS
     Route: 042
     Dates: start: 202407, end: 202407
  5. PONATINIB [Concomitant]
     Active Substance: PONATINIB
     Dosage: 15 MILLIGRAM, THRICE/WEEK
  6. DASATINIB [Concomitant]
     Active Substance: DASATINIB

REACTIONS (9)
  - Central nervous system leukaemia [Unknown]
  - Cytokine release syndrome [Recovered/Resolved]
  - Cerebrovascular stenosis [Unknown]
  - Neutrophil count decreased [Unknown]
  - Herpes virus infection [Recovered/Resolved]
  - White blood cell count decreased [Unknown]
  - Nausea [Unknown]
  - Weight decreased [Unknown]
  - Pyrexia [Recovered/Resolved]

NARRATIVE: CASE EVENT DATE: 20240101
